FAERS Safety Report 4473741-8 (Version None)
Quarter: 2004Q4

REPORT INFORMATION
  Report Type: 
  Country: None (occurrence: None)
  Receive Date: 20040907
  Receipt Date: 20031219
  Transmission Date: 20050328
  Serious: Yes (Hospitalization)
  Sender: FDA-Public Use
  Company Number: PHEH2003US11596

PATIENT
  Age: 44 Year
  Sex: Male

DRUGS (1)
  1. NEORAL [Suspect]
     Indication: RENAL TRANSPLANT
     Dosage: 0.5 ML. BID, ORAL
     Route: 048
     Dates: start: 20031001

REACTIONS (4)
  - DRUG INEFFECTIVE [None]
  - FACE OEDEMA [None]
  - KIDNEY TRANSPLANT REJECTION [None]
  - POLLAKIURIA [None]
